FAERS Safety Report 5299761-1 (Version None)
Quarter: 2007Q2

REPORT INFORMATION
  Report Type: 
  Country: None (occurrence: None)
  Receive Date: 20070417
  Receipt Date: 20070405
  Transmission Date: 20071010
  Serious: Yes (Other)
  Sender: FDA-Public Use
  Company Number: US-PFIZER INC-2007024795

PATIENT
  Sex: Female
  Weight: 81.6 kg

DRUGS (7)
  1. XALATAN [Suspect]
     Indication: GLAUCOMA
     Route: 047
  2. PRAVACHOL [Concomitant]
  3. TRILEPTAL [Concomitant]
  4. VITAMIN B-12 [Concomitant]
  5. STARLIX [Concomitant]
  6. TIMOLOL MALEATE [Concomitant]
  7. INSULIN [Concomitant]

REACTIONS (10)
  - BACK PAIN [None]
  - BLOOD CHOLESTEROL INCREASED [None]
  - BRONCHITIS [None]
  - HAIR COLOUR CHANGES [None]
  - HOT FLUSH [None]
  - HYPERHIDROSIS [None]
  - INSOMNIA [None]
  - MUSCULOSKELETAL PAIN [None]
  - NEUROPATHY [None]
  - PERNICIOUS ANAEMIA [None]
